FAERS Safety Report 10623125 (Version 2)
Quarter: 2014Q4

REPORT INFORMATION
  Report Type: Spontaneous
  Country: JP (occurrence: JP)
  Receive Date: 20141203
  Receipt Date: 20141210
  Transmission Date: 20150529
  Serious: Yes (Other)
  Sender: FDA-Public Use
  Company Number: JP-BAYER-2014-175928

PATIENT
  Age: 79 Year
  Sex: Female

DRUGS (1)
  1. ACETYLSALICYLIC ACID({=100 MG) [Suspect]
     Active Substance: ASPIRIN
     Dosage: UNK, UNK
     Route: 048

REACTIONS (7)
  - Varices oesophageal [None]
  - Gastric varices haemorrhage [Recovered/Resolved]
  - Hepatic function abnormal [None]
  - Chest discomfort [Recovered/Resolved]
  - Hepatic cirrhosis [None]
  - Gastric varices [Recovered/Resolved]
  - Vomiting [Recovered/Resolved]
